FAERS Safety Report 21568192 (Version 1)
Quarter: 2022Q4

REPORT INFORMATION
  Report Type: Spontaneous
  Country: US (occurrence: None)
  Receive Date: 20221107
  Receipt Date: 20221107
  Transmission Date: 20230113
  Serious: Yes (Hospitalization)
  Sender: FDA-Public Use
  Company Number: None

PATIENT
  Age: 76 Year
  Sex: Male
  Weight: 95 kg

DRUGS (1)
  1. CABOZANTINIB [Suspect]
     Active Substance: CABOZANTINIB
     Indication: Metastatic renal cell carcinoma
     Dosage: 40 MG EVERY DAY PO
     Route: 048
     Dates: start: 20220824, end: 20221012

REACTIONS (9)
  - Burning sensation [None]
  - Rash [None]
  - Rash [None]
  - Oral mucosal exfoliation [None]
  - Oral pain [None]
  - Pain in extremity [None]
  - Palmar-plantar erythrodysaesthesia syndrome [None]
  - Stomatitis [None]
  - Oedema peripheral [None]

NARRATIVE: CASE EVENT DATE: 20221013
